FAERS Safety Report 21925218 (Version 1)
Quarter: 2023Q1

REPORT INFORMATION
  Report Type: Spontaneous
  Country: US (occurrence: US)
  Receive Date: 20230130
  Receipt Date: 20230130
  Transmission Date: 20230417
  Serious: No
  Sender: FDA-Public Use
  Company Number: US-BRISTOL-MYERS SQUIBB COMPANY-2023-013000

PATIENT
  Age: 83 Year
  Sex: Female
  Weight: 66.95 kg

DRUGS (1)
  1. LENALIDOMIDE [Suspect]
     Active Substance: LENALIDOMIDE
     Indication: Plasma cell myeloma
     Dosage: FREQ - DAILY DAYS 1-21, EVERY 28 DAYS
     Route: 048
     Dates: start: 20220920

REACTIONS (3)
  - Malaise [Unknown]
  - Tremor [Unknown]
  - Blood calcium decreased [Unknown]
